FAERS Safety Report 9454678 (Version 1)
Quarter: 2013Q3

REPORT INFORMATION
  Report Type: Spontaneous
  Country: CN (occurrence: CN)
  Receive Date: 20130812
  Receipt Date: 20130812
  Transmission Date: 20140515
  Serious: Yes (Other)
  Sender: FDA-Public Use
  Company Number: PHHY2013CN084736

PATIENT
  Age: 69 Year
  Sex: Male

DRUGS (2)
  1. OFLOXACIN [Suspect]
     Indication: NASOPHARYNGITIS
     Dosage: 200 MG, BID
     Route: 048
  2. CYCLOSPORIN A [Concomitant]

REACTIONS (4)
  - Myasthenia gravis [Recovering/Resolving]
  - Eyelid ptosis [Recovering/Resolving]
  - Diplopia [Recovering/Resolving]
  - Dysphagia [Recovering/Resolving]
